FAERS Safety Report 7889311-5 (Version None)
Quarter: 2011Q4

REPORT INFORMATION
  Report Type: 
  Country: None (occurrence: None)
  Receive Date: 20111103
  Receipt Date: 20111025
  Transmission Date: 20120403
  Serious: Yes (Death, Hospitalization)
  Sender: FDA-Public Use
  Company Number: US-CELGENEUS-163-21880-11062651

PATIENT
  Sex: Female
  Weight: 46.762 kg

DRUGS (7)
  1. ISORDIL [Concomitant]
     Dosage: 20 MILLIGRAM
     Route: 065
  2. REVLIMID [Suspect]
     Dosage: 5 MILLIGRAM
     Route: 048
     Dates: start: 20110101, end: 20110101
  3. ATACAND [Concomitant]
     Dosage: 32 MILLIGRAM
     Route: 065
  4. COREG [Concomitant]
     Dosage: 350 MILLIGRAM
     Route: 065
  5. REVLIMID [Suspect]
     Indication: MULTIPLE MYELOMA
     Dosage: 5 MILLIGRAM
     Route: 048
     Dates: start: 20110401, end: 20110101
  6. NORVASC [Concomitant]
     Dosage: 10 MILLIGRAM
     Route: 065
  7. DIOVAN [Concomitant]
     Dosage: 80 MILLIGRAM
     Route: 065

REACTIONS (3)
  - DEATH [None]
  - VOMITING [None]
  - CHEST PAIN [None]
